FAERS Safety Report 5345322-5 (Version None)
Quarter: 2007Q2

REPORT INFORMATION
  Report Type: 
  Country: None (occurrence: None)
  Receive Date: 20070601
  Receipt Date: 20070524
  Transmission Date: 20071010
  Serious: Yes (Other)
  Sender: FDA-Public Use
  Company Number: 2007SP008537

PATIENT
  Age: 37 Year
  Sex: Female

DRUGS (2)
  1. PEG-INTRON [Suspect]
     Indication: HEPATITIS C
     Dosage: SC
     Route: 058
     Dates: start: 20070301
  2. RIBAVIRIN [Suspect]
     Indication: HEPATITIS C
     Dosage: PO
     Route: 048
     Dates: start: 20070301

REACTIONS (12)
  - DEHYDRATION [None]
  - DRUG EFFECT DECREASED [None]
  - FATIGUE [None]
  - GASTROINTESTINAL INFECTION [None]
  - HEADACHE [None]
  - INJECTION SITE ERYTHEMA [None]
  - INJECTION SITE PRURITUS [None]
  - NAUSEA [None]
  - PAIN IN EXTREMITY [None]
  - RETCHING [None]
  - SLEEP DISORDER [None]
  - VOMITING [None]
